FAERS Safety Report 23433943 (Version 1)
Quarter: 2024Q1

REPORT INFORMATION
  Report Type: Spontaneous
  Country: US (occurrence: US)
  Receive Date: 20240123
  Receipt Date: 20240123
  Transmission Date: 20240409
  Serious: No
  Sender: FDA-Public Use
  Company Number: US-BRACCO-2023US01619

PATIENT
  Sex: Male

DRUGS (1)
  1. CARDIOGEN-82 [Suspect]
     Active Substance: RUBIDIUM CHLORIDE RB-82
     Indication: Cardiac stress test
     Dosage: 32 ML, SINGLE, TOTAL VOLUMER THROUGH GENERATOR  17.027 L
     Route: 042
     Dates: start: 20230331, end: 20230331

REACTIONS (2)
  - Expired product administered [Unknown]
  - No adverse event [Unknown]

NARRATIVE: CASE EVENT DATE: 20230331
